FAERS Safety Report 4429500-5 (Version None)
Quarter: 2004Q3

REPORT INFORMATION
  Report Type: 
  Country: None (occurrence: None)
  Receive Date: 20040819
  Receipt Date: 20040811
  Transmission Date: 20050211
  Serious: Yes (Hospitalization)
  Sender: FDA-Public Use
  Company Number: US-ROCHE-377650

PATIENT
  Age: 36 Year
  Sex: Male
  Weight: 93 kg

DRUGS (5)
  1. KLONOPIN [Suspect]
     Indication: ANXIETY
     Dosage: FREQUENCY WAS REPORTED AS PRN.
     Route: 048
     Dates: start: 20040719, end: 20040801
  2. ZOLOFT [Concomitant]
     Indication: DEPRESSION
     Route: 048
     Dates: start: 19960615
  3. CONCERTA [Concomitant]
     Route: 048
     Dates: start: 20030615
  4. RITALIN [Concomitant]
     Route: 048
     Dates: start: 20030615
  5. ENBREL [Concomitant]
     Route: 058

REACTIONS (7)
  - DEHYDRATION [None]
  - FLUID INTAKE REDUCED [None]
  - INSOMNIA [None]
  - MARKEDLY REDUCED DIETARY INTAKE [None]
  - MASTOIDITIS [None]
  - MUSCLE CRAMP [None]
  - TRANSIENT ISCHAEMIC ATTACK [None]
